FAERS Safety Report 17896841 (Version 1)
Quarter: 2020Q2

REPORT INFORMATION
  Report Type: Spontaneous
  Country: CO (occurrence: CO)
  Receive Date: 20200615
  Receipt Date: 20200615
  Transmission Date: 20200714
  Serious: Yes (Other)
  Sender: FDA-Public Use
  Company Number: CO-PFIZER INC-2020227508

PATIENT
  Age: 12 Year
  Sex: Female

DRUGS (1)
  1. GENOTROPIN [Suspect]
     Active Substance: SOMATROPIN
     Indication: GROWTH HORMONE DEFICIENCY
     Dosage: 1.2 MG
     Route: 058
     Dates: start: 2018

REACTIONS (4)
  - Psychomotor hyperactivity [Unknown]
  - Autoimmune lymphoproliferative syndrome [Unknown]
  - Therapeutic product effect incomplete [Unknown]
  - Lymphadenopathy [Unknown]
